FAERS Safety Report 16618590 (Version 2)
Quarter: 2019Q3

REPORT INFORMATION
  Report Type: Spontaneous
  Country: US (occurrence: US)
  Receive Date: 20190723
  Receipt Date: 20190807
  Transmission Date: 20191004
  Serious: No
  Sender: FDA-Public Use
  Company Number: US-HORIZON-DUE-0422-2019

PATIENT
  Age: 59 Year
  Sex: Female

DRUGS (2)
  1. LISINOPRIL. [Concomitant]
     Active Substance: LISINOPRIL
  2. DUEXIS [Suspect]
     Active Substance: FAMOTIDINE\IBUPROFEN
     Indication: BACK PAIN
     Dosage: USUALLY 1 TAB QD, SOMETIMES 1 TAB TID
     Dates: start: 2017

REACTIONS (3)
  - Pain [Not Recovered/Not Resolved]
  - Intentional product use issue [Unknown]
  - Therapy cessation [Not Recovered/Not Resolved]
